FAERS Safety Report 6482728-5 (Version None)
Quarter: 2009Q4

REPORT INFORMATION
  Report Type: 
  Country: None (occurrence: None)
  Receive Date: 20091204
  Receipt Date: 20091112
  Transmission Date: 20100525
  Serious: Yes (Hospitalization)
  Sender: FDA-Public Use
  Company Number: 20090564

PATIENT
  Age: 71 Year
  Sex: Female

DRUGS (1)
  1. VENOFER [Suspect]
     Indication: ANAEMIA
     Dosage: 300 MG OVER 2 HOURS INTRAVENOUS
     Route: 042
     Dates: start: 20091104, end: 20091104

REACTIONS (6)
  - BLOOD PRESSURE SYSTOLIC INCREASED [None]
  - CYANOSIS [None]
  - HYPERHIDROSIS [None]
  - JOINT SWELLING [None]
  - MALAISE [None]
  - VERTIGO [None]
